FAERS Safety Report 8974493 (Version 2)
Quarter: 2013Q1

REPORT INFORMATION
  Report Type: Spontaneous
  Country: RO (occurrence: RO)
  Receive Date: 20121220
  Receipt Date: 20130102
  Transmission Date: 20140127
  Serious: Yes (Life-Threatening)
  Sender: FDA-Public Use
  Company Number: RO-TEVA-376755ISR

PATIENT
  Age: 26 Year
  Sex: Female

DRUGS (3)
  1. LAMOTRIGINE [Suspect]
     Indication: CONVULSION
     Dosage: 25 MILLIGRAM DAILY; INITIAL DOSE OF 25 MG/DAY
  2. LAMOTRIGINE [Suspect]
     Dosage: 50 MILLIGRAM DAILY; INCREASED TO 50 MG /DAY AT DAY 8
  3. LAMOTRIGINE [Suspect]
     Dosage: 75 MILLIGRAM DAILY; INCREASED TO 75 MG/ DAY AT DAY 15

REACTIONS (6)
  - Drug reaction with eosinophilia and systemic symptoms [Recovered/Resolved]
  - Hepatitis [Recovered/Resolved]
  - Lymphadenopathy [Recovered/Resolved]
  - Myalgia [Recovered/Resolved]
  - Arthralgia [Recovered/Resolved]
  - Headache [Recovered/Resolved]
